FAERS Safety Report 9908150 (Version 2)
Quarter: 2014Q1

REPORT INFORMATION
  Report Type: Spontaneous
  Country: US (occurrence: None)
  Receive Date: 20130305
  Receipt Date: 20140306
  Transmission Date: 20141002
  Serious: Yes (Other)
  Sender: FDA-Public Use
  Company Number: 163-21880-12071375

PATIENT
  Age: 62 Year
  Sex: Male
  Weight: 77.1 kg

DRUGS (6)
  1. REVLIMID [Suspect]
     Indication: PLASMA CELL MYELOMA
     Dosage: 25 MG, 11 IN 21 D, PO
     Route: 048
     Dates: start: 20120620, end: 201207
  2. BOTOX (BOTULINUM TOXIN TYPE A) (INJECTION) [Concomitant]
  3. ALDACTONE (SPIRONOLACTONE) [Concomitant]
  4. COUMADIN (WARFARIN SODIUM) [Concomitant]
  5. DIOVAN HCT (CO-DIOVAN) [Concomitant]
  6. SUMATRIPTAN SUCCINATE (SUMATRIPTAN SUCCINATE) [Concomitant]

REACTIONS (5)
  - Contusion [None]
  - Cardiac failure congestive [None]
  - Fatigue [None]
  - Oedema [None]
  - Chest discomfort [None]
